FAERS Safety Report 8121967-4 (Version None)
Quarter: 2012Q1

REPORT INFORMATION
  Report Type: 
  Country: None (occurrence: None)
  Receive Date: 20120208
  Receipt Date: 20120205
  Transmission Date: 20120608
  Serious: Yes (Other)
  Sender: FDA-Public Use
  Company Number: US-PFIZER INC-2012023293

PATIENT
  Sex: Female
  Weight: 62.13 kg

DRUGS (6)
  1. DIAZEPAM [Concomitant]
     Indication: ANXIETY
     Dosage: 10 MG, 2X/DAY
     Route: 048
  2. PRIMACOR [Concomitant]
     Indication: EMPHYSEMA
     Dosage: 0.5 MG, 2X/DAY
  3. CHANTIX [Suspect]
     Indication: SMOKING CESSATION THERAPY
     Dosage: 0.5 MG, DAILY
  4. CHANTIX [Suspect]
     Dosage: UNK
     Dates: start: 20120101
  5. NEXIUM [Concomitant]
     Indication: GASTROOESOPHAGEAL REFLUX DISEASE
     Dosage: 40 MG, DAILY
     Route: 048
  6. OXYCODONE [Concomitant]
     Indication: PAIN
     Dosage: 5 MG, 2X/DAY AS NEEDED
     Route: 048

REACTIONS (8)
  - STRESS [None]
  - DEPRESSION [None]
  - MENTAL DISORDER [None]
  - HEADACHE [None]
  - UTERINE DISORDER [None]
  - DRUG INEFFECTIVE [None]
  - THINKING ABNORMAL [None]
  - TOBACCO USER [None]
